FAERS Safety Report 14120551 (Version 5)
Quarter: 2018Q4

REPORT INFORMATION
  Report Type: Report from Study
  Country: HU (occurrence: HU)
  Receive Date: 20171024
  Receipt Date: 20181106
  Transmission Date: 20190204
  Serious: Yes (Hospitalization, Other)
  Sender: FDA-Public Use
  Company Number: PHHY2017HU150952

PATIENT
  Age: 47 Year
  Sex: Male
  Weight: 72 kg

DRUGS (11)
  1. TAFINLAR [Suspect]
     Active Substance: DABRAFENIB MESYLATE
     Indication: MALIGNANT MELANOMA
     Dosage: 150 MG, BID
     Route: 048
     Dates: start: 20170408, end: 20170927
  2. TAFINLAR [Suspect]
     Active Substance: DABRAFENIB MESYLATE
     Dosage: 150 MG, BID
     Route: 065
     Dates: start: 20180227
  3. TAFINLAR [Suspect]
     Active Substance: DABRAFENIB MESYLATE
     Dosage: 150 MG, BID
     Route: 065
     Dates: end: 20181011
  4. MEKINIST [Suspect]
     Active Substance: TRAMETINIB DIMETHYL SULFOXIDE
     Indication: MALIGNANT MELANOMA
     Dosage: 2 MG, QD
     Route: 048
     Dates: start: 20170408, end: 20170927
  5. MEKINIST [Suspect]
     Active Substance: TRAMETINIB DIMETHYL SULFOXIDE
     Dosage: 2 MG, QD
     Route: 048
     Dates: start: 20171121, end: 20180201
  6. MEKINIST [Suspect]
     Active Substance: TRAMETINIB DIMETHYL SULFOXIDE
     Dosage: 2 MG, QD
     Route: 048
     Dates: end: 20181011
  7. MEKINIST [Suspect]
     Active Substance: TRAMETINIB DIMETHYL SULFOXIDE
     Dosage: 2 MG, QD
     Route: 048
     Dates: start: 20180205
  8. TAFINLAR [Suspect]
     Active Substance: DABRAFENIB MESYLATE
     Dosage: 150 MG, BID
     Route: 065
     Dates: start: 20180131, end: 20180201
  9. TAFINLAR [Suspect]
     Active Substance: DABRAFENIB MESYLATE
     Dosage: 75 MG, BID
     Route: 065
     Dates: start: 20180205
  10. CONTROLOC [Concomitant]
     Active Substance: PANTOPRAZOLE SODIUM
     Indication: PRODUCT USED FOR UNKNOWN INDICATION
     Route: 065
  11. TAFINLAR [Suspect]
     Active Substance: DABRAFENIB MESYLATE
     Dosage: 75 MG, BID
     Route: 065
     Dates: start: 20171018

REACTIONS (49)
  - Pancreatitis acute [Recovering/Resolving]
  - Eructation [Unknown]
  - Dizziness [Unknown]
  - Pulmonary mass [Unknown]
  - Vomiting [Not Recovered/Not Resolved]
  - Viral infection [Recovered/Resolved]
  - Gastroenteritis [Recovered/Resolved]
  - Hepatic steatosis [Unknown]
  - Skin papilloma [Unknown]
  - Lymphadenopathy [Unknown]
  - Pain [Unknown]
  - Ileus [Unknown]
  - Malignant melanoma [Unknown]
  - Vomiting [Recovered/Resolved]
  - Blood creatine phosphokinase increased [Not Recovered/Not Resolved]
  - Viral infection [Unknown]
  - Lung disorder [Unknown]
  - Hyperaemia [Unknown]
  - Abdominal distension [Unknown]
  - Flatulence [Unknown]
  - Malaise [Recovered/Resolved]
  - Neutrophil count decreased [Unknown]
  - Upper respiratory tract infection [Recovering/Resolving]
  - Seasonal allergy [Unknown]
  - Hiatus hernia [Unknown]
  - Abdominal mass [Unknown]
  - Intestinal dilatation [Unknown]
  - Syncope [Unknown]
  - Diarrhoea [Not Recovered/Not Resolved]
  - Inguinal mass [Recovering/Resolving]
  - Blood lactate dehydrogenase increased [Unknown]
  - Metastases to central nervous system [Unknown]
  - Abdominal pain [Not Recovered/Not Resolved]
  - Malignant neoplasm progression [Unknown]
  - Throat irritation [Unknown]
  - Seborrhoeic dermatitis [Unknown]
  - Intestinal mass [Unknown]
  - Mesenteric neoplasm [Unknown]
  - Large intestinal ulcer [Unknown]
  - Pyrexia [Not Recovered/Not Resolved]
  - Folliculitis [Recovering/Resolving]
  - Gastrooesophageal reflux disease [Unknown]
  - Fall [Recovering/Resolving]
  - Loss of consciousness [Recovered/Resolved]
  - Pyrexia [Recovered/Resolved]
  - Nausea [Unknown]
  - Diarrhoea [Recovered/Resolved]
  - White blood cell count decreased [Unknown]
  - Thyroiditis [Unknown]

NARRATIVE: CASE EVENT DATE: 20170825
